FAERS Safety Report 4474835-3 (Version None)
Quarter: 2004Q4

REPORT INFORMATION
  Report Type: 
  Country: None (occurrence: None)
  Receive Date: 20041012
  Receipt Date: 20040923
  Transmission Date: 20050328
  Serious: Yes (Other)
  Sender: FDA-Public Use
  Company Number: 239453

PATIENT
  Sex: Female

DRUGS (2)
  1. ACTRAPID(INSULIN HUMAN) SOLUTION FOR INJECTION [Suspect]
     Indication: ILL-DEFINED DISORDER
  2. PROTAPHANE (INSULIN HUMAN) SUSPENSION FOR INJECTION [Suspect]
     Indication: ILL-DEFINED DISORDER

REACTIONS (1)
  - CEREBROVASCULAR ACCIDENT [None]
